FAERS Safety Report 5217176-9 (Version None)
Quarter: 2007Q1

REPORT INFORMATION
  Report Type: 
  Country: None (occurrence: None)
  Receive Date: 20070122
  Receipt Date: 20070122
  Transmission Date: 20070707
  Serious: Yes (Other)
  Sender: FDA-Public Use
  Company Number: None

PATIENT
  Age: 72 Year
  Sex: Male

DRUGS (3)
  1. UROXATRAL [Suspect]
     Indication: BENIGN PROSTATIC HYPERPLASIA
     Dosage: 10MG QD PO
     Route: 048
     Dates: start: 20060724, end: 20061018
  2. RABEPRAZOLE SODIUM [Concomitant]
  3. ATENOLOL [Concomitant]

REACTIONS (2)
  - DIZZINESS [None]
  - DRUG EFFECT DECREASED [None]
